FAERS Safety Report 23549030 (Version 6)
Quarter: 2024Q4

REPORT INFORMATION
  Report Type: Spontaneous
  Country: IN (occurrence: IN)
  Receive Date: 20240221
  Receipt Date: 20241119
  Transmission Date: 20250114
  Serious: Yes (Other)
  Sender: PFIZER
  Company Number: IN-PFIZER INC-PV202300110555

PATIENT
  Age: 56 Year
  Sex: Female
  Weight: 46 kg

DRUGS (1)
  1. LORLATINIB [Suspect]
     Active Substance: LORLATINIB
     Indication: Lung adenocarcinoma
     Dosage: 100 MG, 1X/DAY
     Route: 048
     Dates: start: 20230330

REACTIONS (9)
  - Rib fracture [Unknown]
  - Weight increased [Not Recovered/Not Resolved]
  - Low density lipoprotein increased [Unknown]
  - Heart rate increased [Unknown]
  - Blood pressure increased [Unknown]
  - Haemoglobin decreased [Unknown]
  - Blood glucose increased [Unknown]
  - Mucosal inflammation [Unknown]
  - Oral herpes [Unknown]

NARRATIVE: CASE EVENT DATE: 20230608
